FAERS Safety Report 18052169 (Version 2)
Quarter: 2020Q3

REPORT INFORMATION
  Report Type: Spontaneous
  Country: US (occurrence: US)
  Receive Date: 20200721
  Receipt Date: 20200803
  Transmission Date: 20201103
  Serious: Yes (Death, Other)
  Sender: FDA-Public Use
  Company Number: US-GILEAD-2020-0482484

PATIENT
  Age: 69 Year
  Sex: Female
  Weight: 83.1 kg

DRUGS (12)
  1. REMDESIVIR. [Suspect]
     Active Substance: REMDESIVIR
     Dosage: 100 MG, QD
     Route: 042
     Dates: start: 20200628, end: 20200703
  2. INSULIN ASPART [Concomitant]
     Active Substance: INSULIN ASPART
     Indication: DIABETES MELLITUS
     Dosage: SLIDING
     Route: 058
     Dates: start: 20200626, end: 20200710
  3. FENTANYL. [Concomitant]
     Active Substance: FENTANYL
     Dosage: UNK
     Dates: start: 20200628, end: 20200710
  4. CARBOXYMETHYLCELLULOSE [Concomitant]
     Active Substance: CARBOXYMETHYLCELLULOSE
     Dosage: UNK
     Route: 047
     Dates: start: 20200628, end: 20200703
  5. NOREPINEPHRINE. [Concomitant]
     Active Substance: NOREPINEPHRINE
     Dosage: UNK
     Dates: start: 20200629, end: 20200711
  6. HYDRALAZINE [Concomitant]
     Active Substance: HYDRALAZINE HYDROCHLORIDE
     Dosage: UNK
     Dates: start: 20200702, end: 20200704
  7. CISATRACURIUM. [Concomitant]
     Active Substance: CISATRACURIUM
     Dosage: UNK
     Dates: start: 20200628, end: 20200630
  8. INSULIN [Concomitant]
     Active Substance: INSULIN NOS
     Dosage: UNK
     Dates: start: 20200625, end: 20200702
  9. PROPOFOL. [Concomitant]
     Active Substance: PROPOFOL
     Indication: SEDATION
     Dosage: TITRATE
     Route: 042
     Dates: start: 20200628, end: 20200707
  10. DEXMEDETOMIDINE. [Concomitant]
     Active Substance: DEXMEDETOMIDINE
  11. ENOXAPARIN [Concomitant]
     Active Substance: ENOXAPARIN
     Indication: THROMBOSIS PROPHYLAXIS
     Dosage: 40 MG
     Route: 058
     Dates: start: 20200626, end: 20200710
  12. REMDESIVIR. [Suspect]
     Active Substance: REMDESIVIR
     Indication: COVID-19
     Dosage: 100 MG, QD
     Route: 042
     Dates: start: 20200626, end: 20200627

REACTIONS (2)
  - Death [Fatal]
  - Pyrexia [Recovered/Resolved]

NARRATIVE: CASE EVENT DATE: 20200703
